FAERS Safety Report 5065459-8 (Version None)
Quarter: 2006Q3

REPORT INFORMATION
  Report Type: 
  Country: None (occurrence: None)
  Receive Date: 20060706
  Receipt Date: 20050427
  Transmission Date: 20061208
  Serious: Yes (Death)
  Sender: FDA-Public Use
  Company Number: 1802

PATIENT
  Age: 39 Year
  Sex: Male

DRUGS (3)
  1. AVINZA [Suspect]
     Indication: HERNIA PAIN
     Dosage: 30 MG QD PO
     Route: 048
     Dates: start: 20050425, end: 20050427
  2. TRAZODONE HCL [Concomitant]
  3. VENLAFAXINE HCL [Concomitant]

REACTIONS (1)
  - SUICIDE ATTEMPT [None]
